FAERS Safety Report 14070094 (Version 2)
Quarter: 2017Q4

REPORT INFORMATION
  Report Type: Spontaneous
  Country: FR (occurrence: FR)
  Receive Date: 20171010
  Receipt Date: 20171031
  Transmission Date: 20180321
  Serious: Yes (Other)
  Sender: FDA-Public Use
  Company Number: FR-BAYER-2017-187622

PATIENT
  Age: 33 Year
  Sex: Female

DRUGS (1)
  1. MIRENA [Suspect]
     Active Substance: LEVONORGESTREL
     Indication: CONTRACEPTION
     Dosage: 20 MCG/24HR, CONT
     Route: 015
     Dates: start: 20120206, end: 20170615

REACTIONS (8)
  - Pain in extremity [Not Recovered/Not Resolved]
  - Back pain [Recovered/Resolved]
  - Neck pain [Not Recovered/Not Resolved]
  - Abnormal weight gain [Recovered/Resolved]
  - Alopecia [Recovered/Resolved]
  - Anxiety [Recovered/Resolved]
  - Loss of libido [Recovered/Resolved]
  - Depression [Recovered/Resolved]

NARRATIVE: CASE EVENT DATE: 20161114
